FAERS Safety Report 4512048-7 (Version None)
Quarter: 2004Q4

REPORT INFORMATION
  Report Type: 
  Country: None (occurrence: None)
  Receive Date: 20041123
  Receipt Date: 20041111
  Transmission Date: 20050328
  Serious: Yes (Death, Hospitalization)
  Sender: FDA-Public Use
  Company Number: 12451647

PATIENT
  Age: 52 Year
  Sex: Female

DRUGS (15)
  1. CETUXIMAB [Suspect]
     Indication: COLORECTAL CANCER
     Dosage: 403 MILLIGRAM 1/1 WEEK IV
     Route: 042
     Dates: start: 20031201, end: 20031201
  2. OXALIPLATIN [Suspect]
     Indication: COLORECTAL CANCER
     Dosage: 139 MILLIGRAM 1/1 CYCLE IV
     Route: 042
     Dates: start: 20031201, end: 20031201
  3. LEUCOVORIN CALCIUM [Suspect]
     Indication: COLORECTAL CANCER
     Dosage: 326 MILLIGRAM 2/1 CYCLE IV
     Route: 042
     Dates: start: 20031202, end: 20031202
  4. FLUOROURACIL [Suspect]
     Indication: COLORECTAL CANCER
     Dosage: 670 MILLIGRAM 2/1 CYCLE   IVB
     Route: 040
     Dates: start: 20031202, end: 20031202
  5. WARFARIN SODIUM [Concomitant]
  6. LEVOFLOXACIN [Concomitant]
  7. FENTANYL CITRATE [Concomitant]
  8. HYDROCODONE (HYDROCODONE) [Concomitant]
  9. LORAZEPAM [Concomitant]
  10. DIPHENHYDRAMINE (DIPHENHYDRAMINE HCL) [Concomitant]
  11. ACETAMINOPHEN [Concomitant]
  12. GRANISETRON HCL (GRANISETRON HCL) [Concomitant]
  13. DESAMETASONE (DEXAMETHASONE) [Concomitant]
  14. POTASSIUM CHLORIDE [Concomitant]
  15. AVINZA [Concomitant]

REACTIONS (12)
  - AORTIC THROMBOSIS [None]
  - ATELECTASIS [None]
  - COLORECTAL CANCER METASTATIC [None]
  - FUNGAEMIA [None]
  - LUNG INFECTION PSEUDOMONAL [None]
  - MALIGNANT NEOPLASM PROGRESSION [None]
  - NEUTROPENIA [None]
  - PANCYTOPENIA [None]
  - PNEUMONIA KLEBSIELLA [None]
  - POST PROCEDURAL PAIN [None]
  - SMALL INTESTINAL OBSTRUCTION [None]
  - TORULOPSIS INFECTION [None]
